FAERS Safety Report 10055577 (Version 1)
Quarter: 2014Q2

REPORT INFORMATION
  Report Type: Spontaneous
  Country: DE (occurrence: DE)
  Receive Date: 20140403
  Receipt Date: 20140403
  Transmission Date: 20141212
  Serious: Yes (Other)
  Sender: FDA-Public Use
  Company Number: DE-DRREDDYS-GER/GER/14/0039356

PATIENT
  Age: 33 Year
  Sex: Female
  Weight: 80 kg

DRUGS (6)
  1. VENLAFAXINE [Suspect]
     Indication: DEPRESSION
     Dosage: 150 MG/D AT VARYING DOSAGES
     Route: 048
     Dates: start: 20120505
  2. SINGULAIR [Suspect]
     Indication: ASTHMA
     Route: 048
     Dates: start: 20120505, end: 20130201
  3. LEVOTHYROXINE [Concomitant]
     Indication: HYPOTHYROIDISM
     Route: 048
     Dates: start: 20120505, end: 20130214
  4. SYMBICORT [Concomitant]
     Indication: ASTHMA
     Dosage: DOSAGE UNKNOWN
     Route: 055
     Dates: start: 20120505, end: 20130201
  5. BEROTEC [Concomitant]
     Indication: ASTHMA
     Dosage: ON DEMAND
     Route: 055
     Dates: start: 20120505, end: 20130201
  6. FOL 400 [Concomitant]
     Indication: PROPHYLAXIS OF NEURAL TUBE DEFECT
     Route: 048
     Dates: start: 20120505, end: 20130214

REACTIONS (3)
  - Failed induction of labour [Unknown]
  - Caesarean section [Unknown]
  - Exposure during pregnancy [Unknown]
